FAERS Safety Report 25340853 (Version 1)
Quarter: 2025Q2

REPORT INFORMATION
  Report Type: Spontaneous
  Country: US (occurrence: US)
  Receive Date: 20250521
  Receipt Date: 20250521
  Transmission Date: 20250716
  Serious: No
  Sender: MYLAN
  Company Number: US-MYLANLABS-2025M1038181

PATIENT
  Age: 58 Year
  Sex: Female

DRUGS (2)
  1. ESTRADIOL TRANSDERMAL SYSTEM [Suspect]
     Active Substance: ESTRADIOL
     Indication: Hot flush
     Dosage: 0.1 MILLIGRAM, QD (PER DAY, ONCE-WEEKLY)
  2. AMLODIPINE [Concomitant]
     Active Substance: AMLODIPINE BESYLATE
     Indication: Blood pressure abnormal

REACTIONS (8)
  - Application site pain [Not Recovered/Not Resolved]
  - Application site vesicles [Not Recovered/Not Resolved]
  - Application site scar [Unknown]
  - Application site laceration [Unknown]
  - Application site pruritus [Not Recovered/Not Resolved]
  - Abdominal pain upper [Unknown]
  - Product adhesion issue [Unknown]
  - Product physical issue [Unknown]

NARRATIVE: CASE EVENT DATE: 20250429
